FAERS Safety Report 8613820-4 (Version None)
Quarter: 2012Q3

REPORT INFORMATION
  Report Type: 
  Country: None (occurrence: None)
  Receive Date: 20120823
  Receipt Date: 20120816
  Transmission Date: 20120928
  Serious: No
  Sender: FDA-Public Use
  Company Number: US-BIOGENIDEC-2012BI032347

PATIENT
  Age: 29 Year
  Sex: Male

DRUGS (1)
  1. AVONEX [Suspect]
     Indication: MULTIPLE SCLEROSIS
     Route: 030
     Dates: start: 20111017

REACTIONS (7)
  - CRYING [None]
  - INJECTION SITE PAIN [None]
  - BODY TEMPERATURE DECREASED [None]
  - HYPERHIDROSIS [None]
  - INJECTION SITE HAEMATOMA [None]
  - DEPRESSION [None]
  - PAIN [None]
